FAERS Safety Report 6803615-6 (Version None)
Quarter: 2010Q2

REPORT INFORMATION
  Report Type: 
  Country: None (occurrence: None)
  Receive Date: 20100628
  Receipt Date: 20100520
  Transmission Date: 20101027
  Serious: Yes (Other)
  Sender: FDA-Public Use
  Company Number: MY-SOLVAY-00210003966

PATIENT
  Age: 67 Year
  Sex: Female

DRUGS (1)
  1. COVERSYL 8 MG [Suspect]
     Indication: HYPERTENSION
     Dosage: DAILY DOSE: 8 MILLIGRAM(S)
     Route: 048

REACTIONS (2)
  - COUGH [None]
  - HAEMOPTYSIS [None]
